FAERS Safety Report 7244330-7 (Version None)
Quarter: 2011Q1

REPORT INFORMATION
  Report Type: 
  Country: None (occurrence: None)
  Receive Date: 20110125
  Receipt Date: 20110113
  Transmission Date: 20110831
  Serious: Yes (Other)
  Sender: FDA-Public Use
  Company Number: US-ASTRAZENECA-2010SE52099

PATIENT
  Age: 46 Year
  Sex: Male

DRUGS (4)
  1. ATACAND [Suspect]
     Route: 048
  2. NEXIUM [Suspect]
     Route: 048
  3. CRESTOR [Suspect]
     Route: 048
  4. ONGLYZA [Suspect]
     Route: 048

REACTIONS (8)
  - HYPERGLYCAEMIA [None]
  - CARDIAC DISORDER [None]
  - TYPE 2 DIABETES MELLITUS [None]
  - HYPERTENSION [None]
  - BLOOD CHOLESTEROL INCREASED [None]
  - DRUG DOSE OMISSION [None]
  - MYOCARDIAL INFARCTION [None]
  - DYSPEPSIA [None]
